FAERS Safety Report 15197268 (Version 2)
Quarter: 2018Q3

REPORT INFORMATION
  Report Type: Spontaneous
  Country: US (occurrence: US)
  Receive Date: 20180725
  Receipt Date: 20180731
  Transmission Date: 20181010
  Serious: Yes (Death, Other)
  Sender: FDA-Public Use
  Company Number: US-IMPAX LABORATORIES, INC-2018-IPXL-02429

PATIENT
  Age: 51 Year
  Sex: Male
  Weight: 91 kg

DRUGS (2)
  1. ADRENACLICK [Suspect]
     Active Substance: EPINEPHRINE
     Indication: ANAPHYLACTIC REACTION
     Dosage: 0.3 MG, AT APPROX. 10:47 AM
     Route: 065
     Dates: start: 20180707, end: 20180707
  2. ADRENACLICK [Suspect]
     Active Substance: EPINEPHRINE
     Dosage: 0.3 MG, AT APPROX. 10:49 AM
     Route: 065
     Dates: start: 20180707, end: 20180707

REACTIONS (3)
  - Drug ineffective [Unknown]
  - Needle issue [Unknown]
  - Hypersensitivity [Fatal]

NARRATIVE: CASE EVENT DATE: 20180707
